FAERS Safety Report 7746348-4 (Version None)
Quarter: 2011Q3

REPORT INFORMATION
  Report Type: 
  Country: None (occurrence: None)
  Receive Date: 20110912
  Receipt Date: 20110912
  Transmission Date: 20111222
  Serious: Yes (Other)
  Sender: FDA-Public Use
  Company Number: None

PATIENT
  Sex: Male

DRUGS (2)
  1. HUMIRA [Suspect]
     Indication: CROHN'S DISEASE
     Dosage: 160MG DAY 1, 80MG DAY 15, SUBCUTANEOUS
     Route: 058
     Dates: start: 20110801
  2. HUMIRA [Suspect]
     Indication: CROHN'S DISEASE
     Dosage: 160MG DAY 1, 80MG DAY 15, SUBCUTANEOUS
     Route: 058
     Dates: start: 20110801

REACTIONS (1)
  - BACK PAIN [None]
